FAERS Safety Report 23774960 (Version 1)
Quarter: 2024Q2

REPORT INFORMATION
  Report Type: Spontaneous
  Country: US (occurrence: None)
  Receive Date: 20240423
  Receipt Date: 20240423
  Transmission Date: 20240716
  Serious: No
  Sender: FDA-Public Use
  Company Number: None

PATIENT
  Sex: Female

DRUGS (11)
  1. PROLIA [Suspect]
     Active Substance: DENOSUMAB
     Indication: Senile osteoporosis
     Dates: start: 20231011
  2. ACETAMINOPHEN [Concomitant]
     Active Substance: ACETAMINOPHEN
  3. AMLODIPINE [Concomitant]
     Active Substance: AMLODIPINE BESYLATE
  4. ATORVASTATIN [Concomitant]
  5. BUMETANIDE [Concomitant]
     Active Substance: BUMETANIDE
  6. CALCIDOL [Concomitant]
  7. COENZYME Q10 [Concomitant]
     Active Substance: DIETARY SUPPLEMENT\UBIDECARENONE
  8. FAMOTIDINE [Concomitant]
  9. GLUCOSAMINE [Concomitant]
  10. HUMULIN N [Concomitant]
  11. LANTUS SOLOS INJ [Concomitant]

REACTIONS (1)
  - Dialysis [None]
